FAERS Safety Report 23641148 (Version 1)
Quarter: 2024Q1

REPORT INFORMATION
  Report Type: Spontaneous
  Country: GB (occurrence: GB)
  Receive Date: 20240318
  Receipt Date: 20240318
  Transmission Date: 20240410
  Serious: Yes (Hospitalization)
  Sender: FDA-Public Use
  Company Number: GB-BAXTER-2024BAX014421

PATIENT
  Sex: Female

DRUGS (1)
  1. REMICADE [Suspect]
     Active Substance: INFLIXIMAB
     Indication: Crohn^s disease
     Dosage: (INFLECTRA 1 MG) 285 MG, 6 WEEKLY
     Route: 042

REACTIONS (2)
  - Rib fracture [Unknown]
  - Fall [Unknown]

NARRATIVE: CASE EVENT DATE: 20240306
